FAERS Safety Report 11871269 (Version 1)
Quarter: 2015Q4

REPORT INFORMATION
  Report Type: Spontaneous
  Country: US (occurrence: None)
  Receive Date: 20151224
  Receipt Date: 20151224
  Transmission Date: 20160305
  Serious: No
  Sender: FDA-Public Use
  Company Number: None

PATIENT
  Age: 74 Year
  Sex: Male

DRUGS (8)
  1. DOCUSATE [Concomitant]
     Active Substance: DOCUSATE
  2. PREDNISONE. [Concomitant]
     Active Substance: PREDNISONE
  3. DASATINIB [Suspect]
     Active Substance: DASATINIB
     Indication: NEOPLASM MALIGNANT
     Route: 048
     Dates: start: 20151030
  4. INSULIN ASPART [Concomitant]
     Active Substance: INSULIN ASPART
  5. INSULIN GLARGINE [Concomitant]
     Active Substance: INSULIN GLARGINE
  6. ATENOLOL. [Concomitant]
     Active Substance: ATENOLOL
  7. SENNA [Concomitant]
     Active Substance: SENNA LEAF\SENNOSIDES\SENNOSIDES A AND B
  8. ROSUVASTATIN [Concomitant]
     Active Substance: ROSUVASTATIN

REACTIONS (3)
  - Dyspnoea [None]
  - Pleural effusion [None]
  - Fatigue [None]

NARRATIVE: CASE EVENT DATE: 20151106
